FAERS Safety Report 6963927-2 (Version None)
Quarter: 2010Q3

REPORT INFORMATION
  Report Type: 
  Country: None (occurrence: None)
  Receive Date: 20100831
  Receipt Date: 20100824
  Transmission Date: 20110219
  Serious: Yes (Disabling, Other)
  Sender: FDA-Public Use
  Company Number: 677397

PATIENT
  Age: 45 Year
  Sex: Female

DRUGS (5)
  1. (PAMIDRONIC ACID) [Suspect]
     Indication: BONE PAIN
     Dosage: INTRAVENOUS
     Route: 042
  2. (PAMIDRONIC ACID) [Suspect]
     Indication: METASTATIC PAIN
     Dosage: INTRAVENOUS
     Route: 042
  3. (GOSERELIN) [Concomitant]
  4. EXEMESTANE [Concomitant]
  5. (NSAID'S) [Concomitant]

REACTIONS (4)
  - BENIGN INTRACRANIAL HYPERTENSION [None]
  - OCULAR HYPERAEMIA [None]
  - OPTIC DISC HAEMORRHAGE [None]
  - OPTIC NEURITIS [None]
